FAERS Safety Report 10041232 (Version 1)
Quarter: 2014Q1

REPORT INFORMATION
  Report Type: Spontaneous
  Country: IE (occurrence: IE)
  Receive Date: 20140327
  Receipt Date: 20140327
  Transmission Date: 20141002
  Serious: Yes (Other)
  Sender: FDA-Public Use
  Company Number: IE-ASTRAZENECA-2014SE18846

PATIENT
  Age: 19 Year
  Sex: Male

DRUGS (4)
  1. BUPIVACAINE [Suspect]
     Indication: NERVE BLOCK
     Route: 053
  2. BUPIVACAINE [Suspect]
     Indication: GENERAL ANAESTHESIA
     Route: 053
  3. LIDOCAINE [Suspect]
     Indication: NERVE BLOCK
     Route: 053
  4. LIDOCAINE [Suspect]
     Indication: GENERAL ANAESTHESIA
     Route: 053

REACTIONS (1)
  - Compartment syndrome [Unknown]
